APPROVED DRUG PRODUCT: NALOXONE HYDROCHLORIDE
Active Ingredient: NALOXONE HYDROCHLORIDE
Strength: 1MG/ML
Dosage Form/Route: INJECTABLE;INJECTION
Application: A213843 | Product #001 | TE Code: AP
Applicant: MYLAN LABORATORIES LTD
Approved: Jun 9, 2022 | RLD: No | RS: No | Type: RX